FAERS Safety Report 9022313 (Version 1)
Quarter: 2013Q1

REPORT INFORMATION
  Report Type: Spontaneous
  Country: US (occurrence: US)
  Receive Date: 20130118
  Receipt Date: 20130118
  Transmission Date: 20140127
  Serious: Yes (Hospitalization, Other)
  Sender: FDA-Public Use
  Company Number: US-JNJFOC-20130105501

PATIENT
  Sex: Female
  Weight: 45.36 kg

DRUGS (6)
  1. DURAGESIC [Suspect]
     Indication: PAIN
     Route: 062
  2. SANDOZ FENTANYL TRANSDERMAL SYSTEM [Suspect]
     Indication: PAIN
     Route: 062
     Dates: end: 200907
  3. SANDOZ FENTANYL TRANSDERMAL SYSTEM [Suspect]
     Indication: PAIN
     Route: 062
     Dates: start: 200907, end: 201211
  4. ANTIANXIETY [Suspect]
     Indication: ANXIETY
     Route: 048
     Dates: end: 2012
  5. AN UNKNOWN MEDICATION [Suspect]
     Indication: PRODUCT USED FOR UNKNOWN INDICATION
     Route: 062
     Dates: start: 201211
  6. ANTIANXIETY [Concomitant]
     Indication: ANXIETY
     Route: 048
     Dates: end: 2012

REACTIONS (10)
  - Pelvic fracture [Recovered/Resolved]
  - Psychotic disorder [Recovered/Resolved]
  - Cataract [Recovered/Resolved]
  - Gastrooesophageal reflux disease [Not Recovered/Not Resolved]
  - Oral surgery [Recovered/Resolved]
  - Benign neoplasm of thyroid gland [Not Recovered/Not Resolved]
  - Fall [Recovered/Resolved]
  - Drug effect increased [Recovered/Resolved]
  - Incorrect drug administration duration [Not Recovered/Not Resolved]
  - Pain [Not Recovered/Not Resolved]
